FAERS Safety Report 18533623 (Version 35)
Quarter: 2022Q4

REPORT INFORMATION
  Report Type: Report from Study
  Country: US (occurrence: US)
  Receive Date: 20201123
  Receipt Date: 20221207
  Transmission Date: 20230112
  Serious: Yes (Hospitalization, Other)
  Sender: FDA-Public Use
  Company Number: US-GLAXOSMITHKLINE-US2020AMR209239

PATIENT

DRUGS (3)
  1. BELANTAMAB MAFODOTIN [Suspect]
     Active Substance: BELANTAMAB MAFODOTIN
     Indication: Plasma cell myeloma
     Dosage: UNK UNK, Z, EVERY THREE WEEKS
     Route: 042
     Dates: start: 202008
  2. DEXAMETHASONE [Concomitant]
     Active Substance: DEXAMETHASONE
     Indication: Product used for unknown indication
     Dosage: 920 MG, Z(ONCE PER WEEK)
  3. COVID-19 VACCINE [Concomitant]
     Indication: COVID-19 prophylaxis
     Dosage: UNK
     Dates: start: 20210502

REACTIONS (46)
  - Hospitalisation [Unknown]
  - Drug hypersensitivity [Unknown]
  - Tremor [Recovered/Resolved]
  - Clostridium difficile infection [Recovered/Resolved]
  - COVID-19 [Not Recovered/Not Resolved]
  - Colitis [Not Recovered/Not Resolved]
  - Femur fracture [Not Recovered/Not Resolved]
  - Visual acuity reduced [Not Recovered/Not Resolved]
  - Keratopathy [Recovering/Resolving]
  - COVID-19 pneumonia [Unknown]
  - Thrombosis [Recovering/Resolving]
  - Night blindness [Unknown]
  - Dry eye [Unknown]
  - Foreign body in eye [Recovered/Resolved]
  - Condition aggravated [Unknown]
  - Nausea [Not Recovered/Not Resolved]
  - Vomiting [Recovered/Resolved]
  - Diarrhoea [Recovered/Resolved]
  - Fatigue [Not Recovered/Not Resolved]
  - Platelet count decreased [Recovering/Resolving]
  - Back pain [Not Recovered/Not Resolved]
  - Vision blurred [Unknown]
  - Fracture [Unknown]
  - Illness [Unknown]
  - Eye disorder [Not Recovered/Not Resolved]
  - Visual impairment [Unknown]
  - Diplopia [Not Recovered/Not Resolved]
  - Rib fracture [Not Recovered/Not Resolved]
  - Musculoskeletal chest pain [Not Recovered/Not Resolved]
  - Malaise [Not Recovered/Not Resolved]
  - Fall [Not Recovered/Not Resolved]
  - Contusion [Not Recovered/Not Resolved]
  - Memory impairment [Not Recovered/Not Resolved]
  - Protein total increased [Not Recovered/Not Resolved]
  - Joint injury [Not Recovered/Not Resolved]
  - Procedural pain [Not Recovered/Not Resolved]
  - Osteolysis [Not Recovered/Not Resolved]
  - Pain [Not Recovered/Not Resolved]
  - Ill-defined disorder [Unknown]
  - Dyspnoea [Unknown]
  - Joint dislocation [Unknown]
  - Surgery [Not Recovered/Not Resolved]
  - Osteolysis [Unknown]
  - Somnolence [Not Recovered/Not Resolved]
  - Speech disorder [Not Recovered/Not Resolved]
  - Lower limb fracture [Unknown]

NARRATIVE: CASE EVENT DATE: 20200801
